FAERS Safety Report 4371675-0 (Version None)
Quarter: 2004Q2

REPORT INFORMATION
  Report Type: 
  Country: None (occurrence: None)
  Receive Date: 20040602
  Receipt Date: 20040517
  Transmission Date: 20050107
  Serious: Yes (Life-Threatening, Hospitalization)
  Sender: FDA-Public Use
  Company Number: DSA_24136_2004

PATIENT
  Age: 44 Year
  Sex: Male
  Weight: 110.6777 kg

DRUGS (7)
  1. CARDIZEM LA [Suspect]
     Indication: HYPERTENSION
     Dosage: 360 MG QHS; PO
     Route: 048
     Dates: start: 20040310, end: 20040318
  2. NORVASC [Concomitant]
  3. MONOPRIL [Concomitant]
  4. HYZAAR [Concomitant]
  5. GLUCOVANCE [Concomitant]
  6. LIPITOR [Concomitant]
  7. PAXIL [Concomitant]

REACTIONS (14)
  - ACUTE GENERALISED EXANTHEMATOUS PUSTULOSIS [None]
  - ADVERSE DRUG REACTION [None]
  - BLOOD CREATINE PHOSPHOKINASE INCREASED [None]
  - BLOOD POTASSIUM DECREASED [None]
  - BLOOD SODIUM DECREASED [None]
  - DIABETES MELLITUS [None]
  - HAEMATOCRIT DECREASED [None]
  - HAEMOGLOBIN DECREASED [None]
  - PAIN [None]
  - PYREXIA [None]
  - RASH GENERALISED [None]
  - RENAL FAILURE ACUTE [None]
  - STEVENS-JOHNSON SYNDROME [None]
  - WHITE BLOOD CELL COUNT INCREASED [None]
